FAERS Safety Report 18627077 (Version 1)
Quarter: 2020Q4

REPORT INFORMATION
  Report Type: Spontaneous
  Country: PT (occurrence: PT)
  Receive Date: 20201217
  Receipt Date: 20201217
  Transmission Date: 20210114
  Serious: Yes (Other)
  Sender: FDA-Public Use
  Company Number: PT-ACCORD-211263

PATIENT
  Age: 79 Year
  Sex: Female

DRUGS (10)
  1. ATORVASTATIN [Concomitant]
     Active Substance: ATORVASTATIN
  2. CANDESARTAN. [Concomitant]
     Active Substance: CANDESARTAN
  3. OMEPRAZOLE. [Concomitant]
     Active Substance: OMEPRAZOLE
  4. ALPRAZOLAM. [Concomitant]
     Active Substance: ALPRAZOLAM
  5. VASTAREL LM [Concomitant]
  6. SUPRALIP [Concomitant]
     Active Substance: FENOFIBRATE
     Dosage: 145 MG
  7. CARVEDILOL/CARVEDILOL HYDROCHLODRIDE [Concomitant]
     Active Substance: CARVEDILOL HYDROCHLORIDE
  8. ULCERMIN [Concomitant]
     Active Substance: SUCRALFATE
  9. LASIX [Concomitant]
     Active Substance: FUROSEMIDE
  10. CLOPIDOGREL [Suspect]
     Active Substance: CLOPIDOGREL BISULFATE
     Indication: PRODUCT USED FOR UNKNOWN INDICATION
     Route: 048

REACTIONS (1)
  - Cardiac discomfort [Recovered/Resolved]
